FAERS Safety Report 23879196 (Version 1)
Quarter: 2024Q2

REPORT INFORMATION
  Report Type: Spontaneous
  Country: US (occurrence: US)
  Receive Date: 20240521
  Receipt Date: 20240521
  Transmission Date: 20240716
  Serious: No
  Sender: FDA-Public Use
  Company Number: US-DENDREON PHARMACEUTICAL LLC-2024DEN000007

PATIENT

DRUGS (4)
  1. PROVENGE [Suspect]
     Active Substance: SIPULEUCEL-T
     Indication: Prostate cancer metastatic
     Dosage: DOSE 1
     Route: 042
     Dates: start: 20231229, end: 20231229
  2. COVID-19 vaccine mRNA [Concomitant]
     Indication: COVID-19 immunisation
     Dosage: 1 UNK, SINGLE
     Route: 030
  3. COVID-19 vaccine mRNA [Concomitant]
     Dosage: 2 UNK, SINGLE
     Route: 030
  4. COVID-19 vaccine mRNA [Concomitant]
     Dosage: 3 UNK, SINGLE
     Route: 030

REACTIONS (1)
  - COVID-19 [Recovered/Resolved]

NARRATIVE: CASE EVENT DATE: 20240101
